FAERS Safety Report 5487426-2 (Version None)
Quarter: 2007Q4

REPORT INFORMATION
  Report Type: 
  Country: None (occurrence: None)
  Receive Date: 20071016
  Receipt Date: 20071004
  Transmission Date: 20080405
  Serious: Yes (Death, Hospitalization, Other)
  Sender: FDA-Public Use
  Company Number: US-PFIZER INC-2006108689

PATIENT
  Sex: Female
  Weight: 75.8 kg

DRUGS (18)
  1. CELEBREX [Suspect]
     Indication: PAIN
     Dosage: FREQ:FREQUENCY: 1-2
     Dates: start: 20020901, end: 20040822
  2. BEXTRA [Suspect]
     Indication: PAIN
     Dates: start: 20020402, end: 20040822
  3. VIOXX [Suspect]
     Indication: ARTHRALGIA
     Dates: start: 20010902, end: 20040822
  4. ACETAMINOPHEN [Concomitant]
     Indication: PAIN
     Dates: start: 20030709, end: 20030809
  5. CYCLOBENZAPRINE HCL [Concomitant]
     Indication: PAIN
     Dates: start: 20010109, end: 20031108
  6. LOTENSIN [Concomitant]
     Indication: HYPERTENSION
     Dates: start: 20030709, end: 20030909
  7. ENALAPRIL MALEATE [Concomitant]
     Indication: HYPERTENSION
     Dates: start: 20030111, end: 20031108
  8. COREG [Concomitant]
     Indication: HYPERTENSION
     Dates: start: 20030408, end: 20031101
  9. COREG [Concomitant]
     Indication: CARDIAC DISORDER
  10. MINITRAN [Concomitant]
     Indication: HYPERTENSION
     Dates: start: 20010216, end: 20041102
  11. MINITRAN [Concomitant]
     Indication: CHEST PAIN
  12. DIGOXIN [Concomitant]
     Indication: CARDIAC DISORDER
     Dates: start: 20030402, end: 20030809
  13. DIGITEK [Concomitant]
     Indication: CARDIAC DISORDER
     Dates: start: 20040309, end: 20041122
  14. COUMADIN [Concomitant]
     Dates: start: 20020822, end: 20040604
  15. HYDROCODONE [Concomitant]
     Dates: start: 20030719, end: 20040505
  16. LEVOTHYROXINE SODIUM [Concomitant]
     Indication: ENDOCRINE DISORDER
     Dates: start: 20010130, end: 20031110
  17. LEVOXYL [Concomitant]
     Indication: ENDOCRINE DISORDER
  18. SYNTHROID [Concomitant]
     Indication: ENDOCRINE DISORDER
     Dates: start: 20020705, end: 20040822

REACTIONS (4)
  - CARDIAC FAILURE CONGESTIVE [None]
  - CARDIOVASCULAR DISORDER [None]
  - CEREBROVASCULAR ACCIDENT [None]
  - MYOCARDIAL INFARCTION [None]
